FAERS Safety Report 8365415-8 (Version None)
Quarter: 2012Q2

REPORT INFORMATION
  Report Type: 
  Country: None (occurrence: None)
  Receive Date: 20120516
  Receipt Date: 20120514
  Transmission Date: 20120825
  Serious: Yes (Life-Threatening, Hospitalization)
  Sender: FDA-Public Use
  Company Number: JP-B.I. PHARMACEUTICALS,INC./RIDGEFIELD-2011-DE-00732GD

PATIENT
  Sex: Female
  Weight: 41 kg

DRUGS (14)
  1. PYDOXAL [Concomitant]
     Dosage: 8DF
  2. MIDAZOLAM HCL [Concomitant]
     Dates: start: 20080731
  3. RIMATIL [Concomitant]
     Indication: RHEUMATOID ARTHRITIS
     Dosage: 4DF
  4. NORVASC [Concomitant]
     Indication: HYPERTENSION
     Dosage: 5 MG
  5. MAGNESIUM OXIDE [Concomitant]
  6. PURSENNID [Concomitant]
  7. MOBIC [Suspect]
     Indication: RHEUMATOID ARTHRITIS
     Dates: start: 20061101
  8. MUCOSTA [Concomitant]
     Dosage: 200 MG
  9. NEUROVITAN /OCTOTIAMINE B2_B6_B12 COMBINED DRUG [Concomitant]
  10. NEUROVITAN /OCTOTIAMINE B2_B6_B12 COMBINED DRUG [Concomitant]
  11. ACETAMINOPHEN [Concomitant]
  12. NEORAL [Concomitant]
     Indication: MYELODYSPLASTIC SYNDROME
     Dosage: 100 MG
  13. FOLIAMIN [Concomitant]
     Dosage: 5 MG
  14. PENTAZOCINE LACTATE [Concomitant]
     Dates: start: 20080731, end: 20080731

REACTIONS (4)
  - ILEAL STENOSIS [None]
  - DIVERTICULUM [None]
  - SMALL INTESTINE ULCER [None]
  - HAEMATOCHEZIA [None]
